FAERS Safety Report 9259937 (Version 1)
Quarter: 2013Q2

REPORT INFORMATION
  Report Type: Spontaneous
  Country: NL (occurrence: NL)
  Receive Date: 20130429
  Receipt Date: 20130429
  Transmission Date: 20140414
  Serious: Yes (Hospitalization)
  Sender: FDA-Public Use
  Company Number: NL-AMGEN-NLDSP2013028641

PATIENT
  Age: 68 Year
  Sex: Female
  Weight: 70 kg

DRUGS (6)
  1. PROLIA [Suspect]
     Indication: OSTEOPOROSIS
     Dosage: 60 MG/ML, UNK
     Route: 058
     Dates: start: 20110425
  2. ENTOCORT [Concomitant]
     Dosage: 3 MG, UNK
  3. ACETYLSALICYLIC ACID [Concomitant]
     Dosage: 80 MG, QD
  4. METOPROLOL [Concomitant]
     Dosage: 100 MG, QD
  5. PERINDOPRIL [Concomitant]
     Dosage: 4 MG, BID
  6. PERSANTIN RETARD [Concomitant]
     Dosage: 200 MG, BID

REACTIONS (2)
  - Cerebrovascular accident [Recovering/Resolving]
  - Visual acuity reduced [Recovered/Resolved with Sequelae]
